FAERS Safety Report 11237132 (Version 4)
Quarter: 2015Q3

REPORT INFORMATION
  Report Type: Spontaneous
  Country: US (occurrence: US)
  Receive Date: 20150703
  Receipt Date: 20150729
  Transmission Date: 20151125
  Serious: Yes (Disabling, Other)
  Sender: FDA-Public Use
  Company Number: US-009507513-1507USA000526

PATIENT
  Sex: Female
  Weight: 81.63 kg

DRUGS (1)
  1. BELSOMRA [Suspect]
     Active Substance: SUVOREXANT
     Indication: INSOMNIA
     Dosage: TOTAL DAILY DOSE: 20 MG, QD
     Route: 048
     Dates: start: 20150428, end: 20150513

REACTIONS (2)
  - Suicidal ideation [Unknown]
  - Suicide attempt [Recovered/Resolved]

NARRATIVE: CASE EVENT DATE: 2015
